FAERS Safety Report 7994550-9 (Version None)
Quarter: 2011Q4

REPORT INFORMATION
  Report Type: 
  Country: None (occurrence: None)
  Receive Date: 20111220
  Receipt Date: 20111213
  Transmission Date: 20120403
  Serious: Yes (Hospitalization)
  Sender: FDA-Public Use
  Company Number: US-JNJFOC-20111003762

PATIENT
  Sex: Female
  Weight: 66 kg

DRUGS (4)
  1. XARELTO [Suspect]
     Indication: KNEE ARTHROPLASTY
     Route: 048
     Dates: start: 20111003, end: 20111005
  2. ZOLOFT [Concomitant]
     Indication: DEPRESSION
  3. MULTI-VITAMINS [Concomitant]
     Indication: VITAMIN SUPPLEMENTATION
  4. ATENOLOL [Concomitant]
     Indication: HYPERTENSION

REACTIONS (1)
  - PULMONARY EMBOLISM [None]
